FAERS Safety Report 18054070 (Version 2)
Quarter: 2020Q4

REPORT INFORMATION
  Report Type: Report from Study
  Country: IN (occurrence: IN)
  Receive Date: 20200722
  Receipt Date: 20201023
  Transmission Date: 20210113
  Serious: Yes (Death, Other)
  Sender: FDA-Public Use
  Company Number: NVSC2020IN087312

PATIENT
  Age: 55 Year
  Sex: Male

DRUGS (1)
  1. VOTRIENT [Suspect]
     Active Substance: PAZOPANIB HYDROCHLORIDE
     Indication: RENAL CELL CARCINOMA
     Dosage: 800 MG, QD
     Route: 048
     Dates: start: 20180830, end: 20201011

REACTIONS (11)
  - Erythema [Unknown]
  - Gastric disorder [Unknown]
  - Renal cell carcinoma [Fatal]
  - Product dose omission issue [Unknown]
  - Prostate infection [Unknown]
  - Malignant neoplasm progression [Fatal]
  - Headache [Unknown]
  - Constipation [Unknown]
  - Fatigue [Unknown]
  - Stomatitis [Unknown]
  - Inappropriate schedule of product administration [Unknown]

NARRATIVE: CASE EVENT DATE: 20200221
